FAERS Safety Report 9376603 (Version 3)
Quarter: 2013Q3

REPORT INFORMATION
  Report Type: Spontaneous
  Country: US (occurrence: US)
  Receive Date: 20130701
  Receipt Date: 20130812
  Transmission Date: 20140515
  Serious: Yes (Hospitalization, Other)
  Sender: FDA-Public Use
  Company Number: US-BIOGENIDEC-2013BI057702

PATIENT
  Age: 49 Year
  Sex: Female

DRUGS (2)
  1. AVONEX [Suspect]
     Indication: MULTIPLE SCLEROSIS
     Route: 030
     Dates: end: 201305
  2. SOLU-MEDROL [Concomitant]
     Indication: MULTIPLE SCLEROSIS

REACTIONS (14)
  - Anaphylactic reaction [Unknown]
  - Anaphylactic shock [Recovered/Resolved]
  - Spinal corpectomy [Recovered/Resolved]
  - Medical device implantation [Recovered/Resolved]
  - Intervertebral disc compression [Recovered/Resolved]
  - Intervertebral disc protrusion [Recovered/Resolved]
  - Nephrolithiasis [Recovered/Resolved]
  - Multiple sclerosis relapse [Recovered/Resolved]
  - Rheumatoid arthritis [Not Recovered/Not Resolved]
  - Fall [Not Recovered/Not Resolved]
  - Intervertebral disc degeneration [Not Recovered/Not Resolved]
  - Local swelling [Recovered/Resolved]
  - Hypoaesthesia [Recovered/Resolved]
  - Muscular weakness [Recovered/Resolved]
